FAERS Safety Report 7950134-X (Version None)
Quarter: 2011Q4

REPORT INFORMATION
  Report Type: 
  Country: None (occurrence: None)
  Receive Date: 20111130
  Receipt Date: 20111123
  Transmission Date: 20120403
  Serious: Yes (Other)
  Sender: FDA-Public Use
  Company Number: US-EISAI INC-E3810-04895-SPO-US

PATIENT
  Sex: Male

DRUGS (5)
  1. ASCORBIC ACID [Concomitant]
     Route: 065
  2. ACIPHEX [Suspect]
     Route: 048
     Dates: start: 20040101
  3. LIBRAX [Concomitant]
     Dosage: UNKNOWN
     Route: 065
  4. ASPIRIN [Concomitant]
     Route: 065
  5. GLUCOSAMINE [Concomitant]
     Dosage: UNKNOWN
     Route: 065

REACTIONS (2)
  - ABDOMINAL PAIN UPPER [None]
  - OSTEOPOROSIS [None]
